FAERS Safety Report 5266601-6 (Version None)
Quarter: 2007Q1

REPORT INFORMATION
  Report Type: 
  Country: None (occurrence: None)
  Receive Date: 20070315
  Receipt Date: 20070305
  Transmission Date: 20070707
  Serious: Yes (Other)
  Sender: FDA-Public Use
  Company Number: US-PFIZER INC-2007017128

PATIENT
  Sex: Female

DRUGS (3)
  1. LYRICA [Suspect]
  2. LAMICTAL [Concomitant]
  3. GABITRIL [Concomitant]

REACTIONS (4)
  - DIZZINESS [None]
  - FEELING DRUNK [None]
  - PANIC ATTACK [None]
  - THROAT TIGHTNESS [None]
